FAERS Safety Report 10744717 (Version 1)
Quarter: 2015Q1

REPORT INFORMATION
  Report Type: Spontaneous
  Country: US (occurrence: US)
  Receive Date: 20150128
  Receipt Date: 20150128
  Transmission Date: 20150721
  Serious: Yes (Hospitalization)
  Sender: FDA-Public Use
  Company Number: US-GLAXOSMITHKLINE INC.-US2014GSK048306

PATIENT
  Sex: Female
  Weight: 57 kg

DRUGS (3)
  1. IMITREX [Suspect]
     Active Substance: SUMATRIPTAN\SUMATRIPTAN SUCCINATE
     Indication: MIGRAINE
     Dosage: UNK, U
  2. XANAX [Concomitant]
     Active Substance: ALPRAZOLAM
  3. EFFEXOR XR [Concomitant]
     Active Substance: VENLAFAXINE HYDROCHLORIDE

REACTIONS (6)
  - Toothache [Unknown]
  - Poor venous access [Unknown]
  - Vomiting projectile [Unknown]
  - Hypophagia [Unknown]
  - Drug ineffective [Unknown]
  - Dehydration [Unknown]
